FAERS Safety Report 7804203-5 (Version None)
Quarter: 2011Q4

REPORT INFORMATION
  Report Type: 
  Country: None (occurrence: None)
  Receive Date: 20111010
  Receipt Date: 20111005
  Transmission Date: 20120403
  Serious: Yes (Life-Threatening, Hospitalization, Other)
  Sender: FDA-Public Use
  Company Number: TR-JNJFOC-20111002772

PATIENT
  Age: 16 Year
  Sex: Female

DRUGS (4)
  1. SERTRALINE HYDROCHLORIDE [Suspect]
     Route: 065
  2. RISPERIDONE [Suspect]
     Indication: ANXIETY DISORDER
     Route: 065
  3. RISPERIDONE [Suspect]
     Route: 065
  4. SERTRALINE HYDROCHLORIDE [Suspect]
     Indication: ANXIETY DISORDER
     Route: 065

REACTIONS (3)
  - CATATONIA [None]
  - NEUROLEPTIC MALIGNANT SYNDROME [None]
  - SEBORRHOEA [None]
